FAERS Safety Report 19736280 (Version 3)
Quarter: 2021Q3

REPORT INFORMATION
  Report Type: Spontaneous
  Country: JP (occurrence: JP)
  Receive Date: 20210823
  Receipt Date: 20210909
  Transmission Date: 20211014
  Serious: Yes (Death, Other)
  Sender: FDA-Public Use
  Company Number: NVSJ2021JP012342

PATIENT
  Age: 74 Year
  Sex: Female

DRUGS (1)
  1. FEMARA [Suspect]
     Active Substance: LETROZOLE
     Indication: MUCINOUS BREAST CARCINOMA
     Dosage: UNK
     Route: 048

REACTIONS (7)
  - Pulmonary embolism [Fatal]
  - Muscular weakness [Unknown]
  - Malignant neoplasm progression [Unknown]
  - Oxygen saturation decreased [Fatal]
  - Metastases to bone [Unknown]
  - Tachypnoea [Fatal]
  - Dyspnoea [Fatal]
